FAERS Safety Report 17432492 (Version 1)
Quarter: 2020Q1

REPORT INFORMATION
  Report Type: Spontaneous
  Country: FR (occurrence: FR)
  Receive Date: 20200218
  Receipt Date: 20200218
  Transmission Date: 20200409
  Serious: Yes (Other)
  Sender: FDA-Public Use
  Company Number: FR-TEVA-2020-FR-1187256

PATIENT
  Age: 76 Year
  Sex: Female
  Weight: 58 kg

DRUGS (4)
  1. NATULAN [Suspect]
     Active Substance: PROCARBAZINE HYDROCHLORIDE
     Indication: CENTRAL NERVOUS SYSTEM LYMPHOMA
     Dosage: 150 MG
     Route: 048
     Dates: start: 20191122, end: 20191128
  2. RIXATHON [Suspect]
     Active Substance: RITUXIMAB
     Indication: CENTRAL NERVOUS SYSTEM LYMPHOMA
     Dosage: 600 MG
     Route: 041
     Dates: start: 20191122, end: 20191122
  3. VINCRISTINE TEVA [Suspect]
     Active Substance: VINCRISTINE
     Indication: CENTRAL NERVOUS SYSTEM LYMPHOMA
     Dosage: 2 MG
     Route: 041
     Dates: start: 20191122, end: 20191122
  4. METHOTREXATE MYLAN [Suspect]
     Active Substance: METHOTREXATE SODIUM
     Indication: CENTRAL NERVOUS SYSTEM LYMPHOMA
     Dosage: 5.8 G
     Route: 041
     Dates: start: 20191122, end: 20191122

REACTIONS (2)
  - Hepatocellular injury [Recovered/Resolved]
  - Jaundice [Recovered/Resolved]

NARRATIVE: CASE EVENT DATE: 20191125
